FAERS Safety Report 9257234 (Version 1)
Quarter: 2013Q1

REPORT INFORMATION
  Report Type: Spontaneous
  Country: US (occurrence: None)
  Receive Date: 20121212
  Receipt Date: 20121212
  Transmission Date: 20140127
  Serious: No
  Sender: FDA-Public Use
  Company Number: 1209USA004658

PATIENT
  Age: 63 Year
  Sex: Female

DRUGS (3)
  1. PEG-INTRON [Suspect]
     Indication: HEPATITIS C
     Dates: start: 20120906
  2. REBETOL [Suspect]
     Indication: HEPATITIS C
     Dates: start: 20120906
  3. VICTRELIS [Suspect]
     Indication: HEPATITIS C

REACTIONS (14)
  - Insomnia [None]
  - Musculoskeletal stiffness [None]
  - Arthralgia [None]
  - Myalgia [None]
  - Influenza [None]
  - Asthenia [None]
  - Pain [None]
  - Hyperhidrosis [None]
  - Headache [None]
  - Myalgia [None]
  - Arthralgia [None]
  - Chest pain [None]
  - Decreased appetite [None]
  - Weight decreased [None]
